FAERS Safety Report 10026472 (Version 2)
Quarter: 2014Q2

REPORT INFORMATION
  Report Type: Spontaneous
  Country: JP (occurrence: JP)
  Receive Date: 20140321
  Receipt Date: 20140423
  Transmission Date: 20141212
  Serious: Yes (Life-Threatening, Hospitalization)
  Sender: FDA-Public Use
  Company Number: JP-009507513-1403JPN010023

PATIENT
  Age: 62 Year
  Sex: Female
  Weight: 38 kg

DRUGS (3)
  1. REMERON [Suspect]
     Indication: DEPRESSION
     Dosage: 15 MG, QD
     Route: 048
     Dates: start: 20140201
  2. REMERON [Suspect]
     Indication: INSOMNIA
  3. AMOBAN [Concomitant]
     Dosage: DAILY DOSAGE UNKNOWN, QD
     Route: 048

REACTIONS (1)
  - Inappropriate antidiuretic hormone secretion [Recovered/Resolved]
